FAERS Safety Report 12561379 (Version 2)
Quarter: 2016Q3

REPORT INFORMATION
  Report Type: Spontaneous
  Country: JP (occurrence: JP)
  Receive Date: 20160715
  Receipt Date: 20160729
  Transmission Date: 20161109
  Serious: Yes (Other)
  Sender: FDA-Public Use
  Company Number: JP-009507513-1607JPN004325

PATIENT
  Age: 73 Year
  Sex: Female
  Weight: 46 kg

DRUGS (7)
  1. FENTANYL CITRATE. [Concomitant]
     Active Substance: FENTANYL CITRATE
     Indication: INDUCTION OF ANAESTHESIA
     Dosage: 2 MICROGRAM PER KILOGRAM, QD (DIVIDED DOSE FREQUENCY UNKNOWN)
     Route: 065
  2. ACETAMINOPHEN. [Concomitant]
     Active Substance: ACETAMINOPHEN
     Indication: ANALGESIC THERAPY
     Dosage: 1 G, QD (DIVIDED DOSE FREQUENCY UNKNOWN)
     Route: 042
  3. SEVOFLURANE. [Concomitant]
     Active Substance: SEVOFLURANE
     Indication: MAINTENANCE OF ANAESTHESIA
     Dosage: 1.5 % (DAILY DOSE UNKNOWN); FORMULATION: INHALED PREPARATION (INH)
     Route: 055
  4. ULTIVA [Concomitant]
     Active Substance: REMIFENTANIL HYDROCHLORIDE
     Indication: MAINTENANCE OF ANAESTHESIA
     Dosage: 0.1-0.15 MICROGRAM/KG/MIN, DIVIDED DOSE FREQUENCY UNKNOWN
     Route: 051
  5. PROPOFOL. [Concomitant]
     Active Substance: PROPOFOL
     Indication: INDUCTION OF ANAESTHESIA
     Dosage: 2 MG/KG, QD (DIVIDED DOSE FREQUENCY UNKNOWN)
     Route: 051
  6. BRIDION [Suspect]
     Active Substance: SUGAMMADEX
     Indication: NEUROMUSCULAR BLOCKADE REVERSAL
     Dosage: 4 MG/KG, QD (DIVIDED DOSE FREQUENCY UNKNOWN)
     Route: 042
  7. ESLAX INTRAVENOUS 25MG/2.5ML [Concomitant]
     Active Substance: ROCURONIUM BROMIDE
     Indication: NEUROMUSCULAR BLOCKING THERAPY
     Dosage: 0.9 MG/KG, QD (DIVIDED DOSE FREQUENCY UNKNOWN)
     Route: 041

REACTIONS (1)
  - Pulmonary oedema [Recovered/Resolved]
